FAERS Safety Report 7510071-1 (Version None)
Quarter: 2011Q2

REPORT INFORMATION
  Report Type: 
  Country: None (occurrence: None)
  Receive Date: 20110527
  Receipt Date: 20110516
  Transmission Date: 20111010
  Serious: Yes (Hospitalization)
  Sender: FDA-Public Use
  Company Number: IT-MYLANLABS-2011S1010390

PATIENT
  Age: 70 Year
  Sex: Female

DRUGS (4)
  1. RAMIPRIL [Concomitant]
     Indication: HYPERTENSION
     Route: 065
  2. ANASTROZOLE [Suspect]
     Indication: BREAST CANCER
     Route: 065
     Dates: start: 20080801
  3. MANIDIPINE [Concomitant]
     Indication: HYPERTENSION
     Route: 065
  4. BISOPROLOL FUMARATE [Concomitant]
     Indication: HYPERTENSION
     Route: 065

REACTIONS (3)
  - HEPATITIS ACUTE [None]
  - HEPATIC FIBROSIS [None]
  - AUTOIMMUNE HEPATITIS [None]
